FAERS Safety Report 8663591 (Version 4)
Quarter: 2013Q3

REPORT INFORMATION
  Report Type: Spontaneous
  Country: US (occurrence: US)
  Receive Date: 20120713
  Receipt Date: 20130702
  Transmission Date: 20140515
  Serious: Yes (Other)
  Sender: FDA-Public Use
  Company Number: PHEH2012US012580

PATIENT
  Age: 54 Year
  Sex: Female

DRUGS (23)
  1. EXELON PATCH [Suspect]
     Indication: DEMENTIA ALZHEIMER^S TYPE
     Dosage: 4.6 MG, DAILY
     Route: 062
     Dates: start: 20120501
  2. EXELON PATCH [Suspect]
     Dosage: 2 PATCHES (4.6 MG), DAILY
     Route: 062
  3. EXELON PATCH [Suspect]
     Dosage: UNK UKN, UNK
     Route: 062
  4. EXELON PATCH [Suspect]
     Dosage: 9.5 MG, ONCE DAILY
     Route: 062
  5. NAMENDA [Concomitant]
     Dosage: UNK UKN, UNK
  6. ARICEPT [Concomitant]
     Dosage: UNK UKN, UNK
  7. PRAVASTATIN [Concomitant]
     Dosage: UNK UKN, UNK
  8. CYMBALTA [Concomitant]
     Dosage: UNK UKN, UNK
  9. SEROQUEL [Concomitant]
     Dosage: UNK UKN, UNK
  10. CARVEDILOL [Concomitant]
     Dosage: UNK UKN, UNK
  11. WARFARIN [Concomitant]
     Dosage: UNK UKN, UNK
  12. ESOMEPRAZOLE [Concomitant]
     Dosage: UNK UKN, UNK
  13. GABAPENTIN [Concomitant]
     Dosage: UNK UKN, UNK
  14. CYCLOBENZAPRINE [Concomitant]
     Dosage: UNK UKN, UNK
  15. LAMOTRIN [Concomitant]
     Dosage: UNK UKN, UNK
  16. LEVOTHYROXINE [Concomitant]
     Dosage: UNK UKN, UNK
  17. TOBRAMAX [Concomitant]
     Dosage: UNK UKN, UNK
  18. PRIMIDONE [Concomitant]
     Dosage: UNK UKN, UNK
  19. HYDROCODONE [Concomitant]
     Dosage: UNK UKN, UNK
  20. ZIPRASIDONE [Concomitant]
     Dosage: UNK UKN, UNK
  21. FLUMADINE [Concomitant]
     Dosage: UNK UKN, UNK
  22. OXYCODONE [Concomitant]
     Dosage: UNK UKN, UNK
  23. BUPROPION [Concomitant]
     Dosage: UNK UKN, UNK

REACTIONS (11)
  - Traumatic haematoma [Not Recovered/Not Resolved]
  - Fall [Not Recovered/Not Resolved]
  - Feeling abnormal [Unknown]
  - Mood altered [Not Recovered/Not Resolved]
  - Incorrect dose administered [Unknown]
  - Confusional state [Not Recovered/Not Resolved]
  - Dyspnoea [Unknown]
  - Constipation [Unknown]
  - Memory impairment [Not Recovered/Not Resolved]
  - Pruritus [Recovered/Resolved]
  - Drug ineffective [Unknown]
